FAERS Safety Report 8069588-6 (Version None)
Quarter: 2012Q1

REPORT INFORMATION
  Report Type: 
  Country: None (occurrence: None)
  Receive Date: 20120125
  Receipt Date: 20120117
  Transmission Date: 20120608
  Serious: Yes (Other)
  Sender: FDA-Public Use
  Company Number: US-PFIZER INC-2012015602

PATIENT
  Age: 28 Year
  Sex: Female

DRUGS (3)
  1. DOXORUBICIN HCL [Suspect]
     Indication: T-CELL LYMPHOMA
     Dosage: 45 MG/M2, UNK
  2. VINCRISTINE [Suspect]
     Indication: T-CELL LYMPHOMA
     Dosage: UNK
  3. PREDNISONE [Suspect]
     Indication: T-CELL LYMPHOMA
     Dosage: UNK

REACTIONS (1)
  - FOETAL DEATH [None]
